FAERS Safety Report 18063091 (Version 1)
Quarter: 2020Q3

REPORT INFORMATION
  Report Type: Spontaneous
  Country: US (occurrence: US)
  Receive Date: 20200723
  Receipt Date: 20200723
  Transmission Date: 20201103
  Serious: Yes (Other)
  Sender: FDA-Public Use
  Company Number: US-GILEAD-2020-0484428

PATIENT
  Age: 50 Year
  Sex: Female
  Weight: 109.75 kg

DRUGS (33)
  1. AZITHROMYCIN ANHYDROUS. [Concomitant]
     Active Substance: AZITHROMYCIN ANHYDROUS
  2. BIKTARVY [Concomitant]
     Active Substance: BICTEGRAVIR SODIUM\EMTRICITABINE\TENOFOVIR ALAFENAMIDE FUMARATE
  3. BUPROPION. [Concomitant]
     Active Substance: BUPROPION
  4. BUSPIRONE [Concomitant]
     Active Substance: BUSPIRONE HYDROCHLORIDE
  5. NAPROXEN. [Concomitant]
     Active Substance: NAPROXEN
  6. RISPERIDONE. [Concomitant]
     Active Substance: RISPERIDONE
  7. TRAMADOL. [Concomitant]
     Active Substance: TRAMADOL
  8. VITAMIN D 2000 [Concomitant]
     Active Substance: VITAMIN D NOS
  9. ATORVASTATIN [Concomitant]
     Active Substance: ATORVASTATIN
  10. CLINDAMYCIN. [Concomitant]
     Active Substance: CLINDAMYCIN
  11. ETODOLAC. [Concomitant]
     Active Substance: ETODOLAC
  12. HYDROXYZINE [Concomitant]
     Active Substance: HYDROXYZINE HYDROCHLORIDE
  13. RANITIDINE. [Concomitant]
     Active Substance: RANITIDINE
  14. ASPIRIN (E.C.) [Concomitant]
     Active Substance: ASPIRIN
  15. NITROFURANTOIN. [Concomitant]
     Active Substance: NITROFURANTOIN
  16. FLUCONAZOLE. [Concomitant]
     Active Substance: FLUCONAZOLE
  17. FOLIC ACID. [Concomitant]
     Active Substance: FOLIC ACID
  18. GAVILYTE ? C [Concomitant]
     Active Substance: POLYETHYLENE GLYCOL 3350\POTASSIUM CHLORIDE\SODIUM BICARBONATE\SODIUM CHLORIDE\SODIUM SULFATE ANHYDROUS
  19. HYDROCHLOROTHIAZIDE. [Concomitant]
     Active Substance: HYDROCHLOROTHIAZIDE
  20. LIDOCAINE. [Concomitant]
     Active Substance: LIDOCAINE
  21. COMPLERA [Suspect]
     Active Substance: EMTRICITABINE\RILPIVIRINE HYDROCHLORIDE\TENOFOVIR DISOPROXIL FUMARATE
     Indication: HIV INFECTION
     Dosage: UNK
     Route: 065
     Dates: start: 20140109, end: 20140409
  22. COMPLERA [Suspect]
     Active Substance: EMTRICITABINE\RILPIVIRINE HYDROCHLORIDE\TENOFOVIR DISOPROXIL FUMARATE
     Dosage: UNK
     Route: 065
     Dates: start: 20170831, end: 20190508
  23. DIAZEPAM. [Concomitant]
     Active Substance: DIAZEPAM
  24. NALTREXONE [Concomitant]
     Active Substance: NALTREXONE
  25. BENZONATATE. [Concomitant]
     Active Substance: BENZONATATE
  26. CIPROFLOXACIN. [Concomitant]
     Active Substance: CIPROFLOXACIN
  27. IBUPROFEN. [Concomitant]
     Active Substance: IBUPROFEN
  28. ACETAMINOPHEN. [Concomitant]
     Active Substance: ACETAMINOPHEN
  29. METRONIDAZOLE. [Concomitant]
     Active Substance: METRONIDAZOLE
  30. SERTRALINE [Concomitant]
     Active Substance: SERTRALINE HYDROCHLORIDE
  31. COMPLERA [Suspect]
     Active Substance: EMTRICITABINE\RILPIVIRINE HYDROCHLORIDE\TENOFOVIR DISOPROXIL FUMARATE
     Dosage: UNK
     Route: 065
     Dates: start: 20140506, end: 20150316
  32. CEPHALEXIN HCL [Concomitant]
     Active Substance: CEPHALEXIN HYDROCHLORIDE
  33. LISINOPRIL [LISINOPRIL DIHYDRATE] [Concomitant]

REACTIONS (3)
  - Fracture [Not Recovered/Not Resolved]
  - Anxiety [Not Recovered/Not Resolved]
  - Depression [Not Recovered/Not Resolved]

NARRATIVE: CASE EVENT DATE: 201401
